FAERS Safety Report 7485810-9 (Version None)
Quarter: 2011Q2

REPORT INFORMATION
  Report Type: 
  Country: None (occurrence: None)
  Receive Date: 20110517
  Receipt Date: 20110503
  Transmission Date: 20111010
  Serious: Yes (Hospitalization)
  Sender: FDA-Public Use
  Company Number: CA-JNJFOC-20110502850

PATIENT
  Sex: Male
  Weight: 84.5 kg

DRUGS (4)
  1. REMICADE [Suspect]
     Indication: PSORIATIC ARTHROPATHY
     Route: 042
  2. ANTICOAGULANT [Concomitant]
  3. ^HEART MEDICATION^ [Concomitant]
  4. CHOLESTEROL MEDICATION [Concomitant]

REACTIONS (1)
  - INFARCTION [None]
